FAERS Safety Report 14291588 (Version 1)
Quarter: 2017Q4

REPORT INFORMATION
  Report Type: Spontaneous
  Country: IL (occurrence: IL)
  Receive Date: 20171215
  Receipt Date: 20171215
  Transmission Date: 20180321
  Serious: Yes (Other)
  Sender: FDA-Public Use
  Company Number: IL-TEVA-2017-IL-833033

PATIENT
  Age: 34 Year
  Sex: Male

DRUGS (1)
  1. EMTRIVIR TEVA [Suspect]
     Active Substance: EMTRICITABINE\TENOFOVIR DISOPROXIL FUMARATE
     Indication: PROPHYLAXIS
     Dosage: START DATE: ABOUT A MONTH AGO. TOOK 2 UNITS IN TOTAL.
     Dates: start: 2017, end: 2017

REACTIONS (6)
  - Headache [Recovered/Resolved]
  - Paraesthesia [Recovered/Resolved]
  - Sinusitis [Recovered/Resolved]
  - Drug hypersensitivity [Unknown]
  - Secretion discharge [Recovered/Resolved]
  - Paraesthesia oral [Recovered/Resolved]

NARRATIVE: CASE EVENT DATE: 2017
